FAERS Safety Report 7690111-X (Version None)
Quarter: 2011Q3

REPORT INFORMATION
  Report Type: 
  Country: None (occurrence: None)
  Receive Date: 20110818
  Receipt Date: 20110808
  Transmission Date: 20111222
  Serious: Yes (Hospitalization, Other)
  Sender: FDA-Public Use
  Company Number: US-ELI_LILLY_AND_COMPANY-US201106003417

PATIENT
  Sex: Female
  Weight: 39 kg

DRUGS (25)
  1. SODIUM PHOSPHATES [Concomitant]
     Indication: CONSTIPATION
  2. POTASSIUM CHLORIDE [Concomitant]
     Dosage: 20 MEQ, QD
     Route: 048
  3. VITAMIN D [Concomitant]
  4. LISINOPRIL [Concomitant]
     Indication: HYPERTENSION
     Dosage: 40 MG, QD
  5. FEXOFENADINE HCL [Concomitant]
     Indication: RHINITIS SEASONAL
     Dosage: 180 MG, QD
     Route: 048
  6. LEVOXYL [Concomitant]
  7. ACETAMINOPHEN [Concomitant]
     Dosage: 650 MG, EVERY 4 HRS
     Route: 048
  8. MYLANTA [Concomitant]
     Dosage: 30 ML, BID
     Route: 048
  9. OMEPRAZOLE [Concomitant]
     Dosage: 20 MG, EACH EVENING
     Route: 048
  10. FORTEO [Suspect]
     Indication: OSTEOPOROSIS
     Dosage: 20 UG, QD
     Route: 058
     Dates: start: 20110501
  11. LISINOPRIL [Concomitant]
     Dosage: 40 MG, BID
     Route: 048
  12. HYDROCHLOROTHIAZIDE [Concomitant]
     Indication: HYPERTENSION
     Dosage: 12.5 MG, QD
  13. SYNTHROID [Concomitant]
     Dosage: 125 UG, EACH EVENING
     Route: 048
  14. FLUTICASONE PROPIONATE [Concomitant]
     Indication: RHINITIS SEASONAL
     Dosage: 100 UG, BID
     Route: 045
  15. MAGNESIUM OXIDE [Concomitant]
     Dosage: 400 MG, EACH MORNING
     Route: 048
  16. MULTI-VITAMIN [Concomitant]
  17. IBUPROFEN [Concomitant]
  18. OXYCODONE HCL [Concomitant]
     Dosage: UNK, PRN
  19. CALCIUM CARBONATE [Concomitant]
  20. NORVASC [Concomitant]
     Indication: HYPERTENSION
     Dosage: 10 MG, QD
     Route: 048
  21. POTASSIUM CITRATE [Concomitant]
     Dosage: 10 MEQ, EACH MORNING
     Route: 048
  22. DOCUSATE SODIUM W/SENNA [Concomitant]
     Dosage: 50 MG, BID
     Route: 048
  23. DOCUSATE SODIUM W/SENNA [Concomitant]
     Dosage: 8.6 MG, BID
     Route: 048
  24. FORTEO [Suspect]
     Dosage: 20 UG, QD
     Route: 058
  25. CALCIUM ACETATE [Concomitant]
     Dosage: 667 MG, EACH MORNING
     Route: 048

REACTIONS (16)
  - LUMBAR VERTEBRAL FRACTURE [None]
  - BUNDLE BRANCH BLOCK RIGHT [None]
  - BLOOD POTASSIUM DECREASED [None]
  - CONTUSION [None]
  - FALL [None]
  - INTRACRANIAL HAEMATOMA [None]
  - HYPONATRAEMIA [None]
  - RADICULOPATHY [None]
  - BALANCE DISORDER [None]
  - ATRIAL FIBRILLATION [None]
  - INTERVERTEBRAL DISC PROTRUSION [None]
  - LOSS OF CONSCIOUSNESS [None]
  - PELVIC FRACTURE [None]
  - HEART VALVE INCOMPETENCE [None]
  - DIZZINESS [None]
  - PULMONARY HYPERTENSION [None]
